FAERS Safety Report 13050187 (Version 1)
Quarter: 2016Q4

REPORT INFORMATION
  Report Type: Spontaneous
  Country: US (occurrence: US)
  Receive Date: 20161221
  Receipt Date: 20161221
  Transmission Date: 20170207
  Serious: Yes (Hospitalization, Other)
  Sender: FDA-Public Use
  Company Number: US-NOVOPROD-494693

PATIENT
  Age: 60 Year
  Sex: Male
  Weight: 110.2 kg

DRUGS (3)
  1. LEVEMIR [Suspect]
     Active Substance: INSULIN DETEMIR
     Dosage: 28 U, BID
     Route: 058
     Dates: start: 2016, end: 20160527
  2. LEVEMIR [Suspect]
     Active Substance: INSULIN DETEMIR
     Indication: TYPE 2 DIABETES MELLITUS
     Dosage: 28 U, BID
     Route: 058
     Dates: end: 2016
  3. LEVEMIR [Suspect]
     Active Substance: INSULIN DETEMIR
     Dosage: 28 U, BID
     Route: 058
     Dates: start: 20160527

REACTIONS (3)
  - Hypoglycaemic unconsciousness [Recovered/Resolved]
  - Hypoglycaemic unconsciousness [Recovered/Resolved]
  - Product quality issue [Recovered/Resolved]

NARRATIVE: CASE EVENT DATE: 2016
